FAERS Safety Report 25526668 (Version 1)
Quarter: 2025Q3

REPORT INFORMATION
  Report Type: Spontaneous
  Country: CN (occurrence: CN)
  Receive Date: 20250707
  Receipt Date: 20250707
  Transmission Date: 20251020
  Serious: Yes (Other)
  Sender: PFIZER
  Company Number: CN-PFIZER INC-PV202500079502

PATIENT
  Age: 76 Year
  Sex: Male
  Weight: 70 kg

DRUGS (1)
  1. TIGECYCLINE [Suspect]
     Active Substance: TIGECYCLINE
     Indication: Acinetobacter infection
     Dosage: 50 MG, 2X/DAY
     Route: 041
     Dates: start: 20250619, end: 20250620

REACTIONS (3)
  - Blood fibrinogen decreased [Not Recovered/Not Resolved]
  - Coagulation time prolonged [Not Recovered/Not Resolved]
  - Epistaxis [Not Recovered/Not Resolved]

NARRATIVE: CASE EVENT DATE: 20250620
